FAERS Safety Report 6965507-1 (Version None)
Quarter: 2010Q3

REPORT INFORMATION
  Report Type: 
  Country: None (occurrence: None)
  Receive Date: 20100903
  Receipt Date: 20100903
  Transmission Date: 20110219
  Serious: Yes (Other)
  Sender: FDA-Public Use
  Company Number: US-MILLENNIUM PHARMACEUTICALS, INC.-2006-02719

PATIENT

DRUGS (1)
  1. VELCADE [Suspect]
     Indication: MANTLE CELL LYMPHOMA
     Dosage: 2.00 MG, UNK
     Route: 040
     Dates: start: 20060721, end: 20060825

REACTIONS (3)
  - ANAEMIA [None]
  - HYPOTENSION [None]
  - RETINAL ARTERY OCCLUSION [None]
